FAERS Safety Report 21723067 (Version 4)
Quarter: 2023Q1

REPORT INFORMATION
  Report Type: Report from Study
  Country: SE (occurrence: SE)
  Receive Date: 20221213
  Receipt Date: 20230125
  Transmission Date: 20230418
  Serious: Yes (Hospitalization)
  Sender: FDA-Public Use
  Company Number: SE-PFIZER INC-PV202200118444

PATIENT
  Age: 54 Year
  Sex: Female
  Weight: 75.9 kg

DRUGS (11)
  1. ENCORAFENIB [Suspect]
     Active Substance: ENCORAFENIB
     Indication: Colon cancer
     Dosage: 300 MG, DAILY
     Route: 048
     Dates: start: 20221004, end: 20221203
  2. CETUXIMAB [Suspect]
     Active Substance: CETUXIMAB
     Indication: Colon cancer
     Dosage: 950 MG, EVERY 2 WEEKS
     Route: 041
     Dates: start: 20221004
  3. OMEPRAZOLE [Concomitant]
     Active Substance: OMEPRAZOLE
     Indication: Gastritis
     Dosage: 20 MG, 2X/DAY, NOT ONGOING
     Route: 048
     Dates: start: 20221201
  4. MOVICOL [Concomitant]
     Active Substance: POLYETHYLENE GLYCOL 3350\POTASSIUM CHLORIDE\SODIUM BICARBONATE\SODIUM CHLORIDE
     Indication: Constipation
     Dosage: SOLUTION, AS NEEDED
     Route: 048
     Dates: start: 20221004
  5. TETRACYCLINE [Concomitant]
     Active Substance: TETRACYCLINE
     Indication: Acne
     Dosage: 300 MG, 2X/DAY
     Route: 048
     Dates: start: 20221004
  6. PRIMPERAN [Concomitant]
     Active Substance: METOCLOPRAMIDE HYDROCHLORIDE
     Indication: Nausea
     Dosage: 10 MG, AS NEEDED
     Route: 048
     Dates: start: 20221004
  7. IBUPROFEN [Concomitant]
     Active Substance: IBUPROFEN
     Indication: Pain
     Dosage: 400 MG, AS NEEDED
     Route: 048
  8. CHLORZOXAZONE [Concomitant]
     Active Substance: CHLORZOXAZONE
     Indication: Hypotonia
     Dosage: 250 MG, AS NEEDED, NOT ONGOING
     Route: 048
  9. TARGINIQ ER [Concomitant]
     Active Substance: NALOXONE HYDROCHLORIDE\OXYCODONE HYDROCHLORIDE
     Indication: Pain
     Dosage: [OXYCODONE HYDROCHLORIDE 15 MG]/[NALOXONE HYDROCHLORIDE 7.5 MG], 2X/DAY, NOT ONGOING
     Route: 048
     Dates: start: 202209
  10. OXYCONTIN [Concomitant]
     Active Substance: OXYCODONE HYDROCHLORIDE
     Indication: Pain
     Dosage: 5 MG, AS NEEDED, NOT ONGOING
     Route: 048
     Dates: start: 202209
  11. OXYCODONE HYDROCHLORIDE [Concomitant]
     Active Substance: OXYCODONE HYDROCHLORIDE
     Indication: Pain
     Dosage: 5 MG, AS NEEDED, NOT ONGOING
     Route: 048
     Dates: start: 202209

REACTIONS (1)
  - Abdominal pain upper [Recovering/Resolving]

NARRATIVE: CASE EVENT DATE: 20221203
